FAERS Safety Report 6111644-3 (Version None)
Quarter: 2009Q1

REPORT INFORMATION
  Report Type: 
  Country: None (occurrence: None)
  Receive Date: 20090311
  Receipt Date: 20090226
  Transmission Date: 20090719
  Serious: Yes (Other)
  Sender: FDA-Public Use
  Company Number: GB-PFIZER INC-2009176820

PATIENT

DRUGS (9)
  1. PREGABALIN [Suspect]
     Indication: POST HERPETIC NEURALGIA
     Dosage: 150 MG, 2X/DAY
     Route: 048
     Dates: start: 20090108, end: 20090210
  2. ACETYLSALICYLIC ACID [Concomitant]
     Dosage: 75 MG, UNK
     Route: 048
  3. BUMETANIDE [Concomitant]
     Dosage: 1 MG, UNK
  4. IRBESARTAN [Concomitant]
     Indication: CARDIAC FAILURE CONGESTIVE
     Dosage: 150 MG, UNK
     Route: 048
  5. ISOSORBIDE MONONITRATE [Concomitant]
     Indication: MYOCARDIAL ISCHAEMIA
     Dosage: 20 MG, 1X/DAY
     Route: 048
  6. OMEPRAZOLE [Concomitant]
     Indication: GASTROOESOPHAGEAL REFLUX DISEASE
     Dosage: 20 MG, 1X/DAY
  7. OXYBUTYNIN [Concomitant]
     Indication: POLLAKIURIA
     Dosage: 7.5 MG, 1X/DAY
     Route: 048
  8. SIMVASTATIN [Concomitant]
     Indication: BLOOD CHOLESTEROL INCREASED
     Dosage: 40 MG, UNK
     Route: 048
  9. SIMVASTATIN [Concomitant]
     Indication: MYOCARDIAL ISCHAEMIA

REACTIONS (5)
  - BALANCE DISORDER [None]
  - DYSPHAGIA [None]
  - MEMORY IMPAIRMENT [None]
  - NEUROLOGICAL SYMPTOM [None]
  - TREMOR [None]
